FAERS Safety Report 9068955 (Version 1)
Quarter: 2013Q1

REPORT INFORMATION
  Report Type: Spontaneous
  Country: US (occurrence: None)
  Receive Date: 20130213
  Receipt Date: 20130213
  Transmission Date: 20140127
  Serious: Yes (Hospitalization)
  Sender: FDA-Public Use
  Company Number: None

PATIENT
  Age: 92 Year
  Sex: Male
  Weight: 82.5 kg

DRUGS (2)
  1. CEFTRIAXONE [Suspect]
     Indication: INFECTION
     Route: 042
     Dates: start: 20130107, end: 20130108
  2. AMOXICILLIN [Suspect]
     Indication: INFECTION
     Route: 048
     Dates: start: 20130110, end: 20130121

REACTIONS (5)
  - Urinary tract infection [None]
  - Diarrhoea [None]
  - White blood cell count increased [None]
  - Clostridium test positive [None]
  - Pyrexia [None]
